FAERS Safety Report 25118963 (Version 6)
Quarter: 2025Q3

REPORT INFORMATION
  Report Type: Spontaneous
  Country: US (occurrence: US)
  Receive Date: 20250325
  Receipt Date: 20250716
  Transmission Date: 20251021
  Serious: Yes (Hospitalization, Other)
  Sender: SANOFI AVENTIS
  Company Number: US-SA-2025SA048513

PATIENT
  Age: 78 Year
  Sex: Male

DRUGS (1)
  1. DUPIXENT [Suspect]
     Active Substance: DUPILUMAB
     Indication: Dermatitis atopic
     Dosage: 300 MG, QOW
     Route: 065
     Dates: start: 202502, end: 202506

REACTIONS (9)
  - Pneumonia [Unknown]
  - Dehydration [Unknown]
  - Blood sodium decreased [Unknown]
  - Chest pain [Recovering/Resolving]
  - Infection [Unknown]
  - Myalgia [Recovering/Resolving]
  - Urinary tract infection [Unknown]
  - Hypersensitivity [Unknown]
  - Eye disorder [Unknown]

NARRATIVE: CASE EVENT DATE: 20250101
